FAERS Safety Report 6766757-X (Version None)
Quarter: 2010Q2

REPORT INFORMATION
  Report Type: 
  Country: None (occurrence: None)
  Receive Date: 20100611
  Receipt Date: 20100604
  Transmission Date: 20101027
  Serious: Yes (Other)
  Sender: FDA-Public Use
  Company Number: FR-B.I. PHARMACEUTICALS,INC./RIDGEFIELD-2010-DE-03059GD

PATIENT
  Sex: Male

DRUGS (6)
  1. PRAMIPEXOLE [Suspect]
     Indication: PARKINSON'S DISEASE
     Dosage: 2.1 MG
     Dates: start: 20070101, end: 20070301
  2. LISURIDE [Suspect]
     Indication: PARKINSON'S DISEASE
     Dosage: 2 MG
     Dates: start: 19910101, end: 20030101
  3. ENTACAPONE [Suspect]
     Indication: PARKINSON'S DISEASE
     Dates: start: 19990101, end: 20060101
  4. PERGOLIDE [Suspect]
     Indication: PARKINSON'S DISEASE
     Dosage: 3 MG
     Dates: start: 20030101, end: 20070101
  5. ROPINIROLE [Suspect]
     Indication: PARKINSON'S DISEASE
     Dosage: LOW DOSE
  6. LEVODOPA [Concomitant]
     Indication: PARKINSON'S DISEASE

REACTIONS (4)
  - ABNORMAL BEHAVIOUR [None]
  - COMPULSIVE SHOPPING [None]
  - PARAPHILIA [None]
  - TRANSVESTISM [None]
